FAERS Safety Report 5003260-1 (Version None)
Quarter: 2006Q2

REPORT INFORMATION
  Report Type: 
  Country: None (occurrence: None)
  Receive Date: 20060510
  Receipt Date: 20060503
  Transmission Date: 20061013
  Serious: Yes (Other)
  Sender: FDA-Public Use
  Company Number: DEWYE596403MAY06

PATIENT
  Age: 41 Year
  Sex: Female

DRUGS (1)
  1. VENLAFAXINE HCL [Suspect]
     Dosage: 75 MG

REACTIONS (2)
  - LYMPHADENOPATHY [None]
  - THROMBOSIS [None]
